FAERS Safety Report 11037762 (Version 2)
Quarter: 2017Q3

REPORT INFORMATION
  Report Type: Report from Study
  Country: KP (occurrence: KP)
  Receive Date: 20150416
  Receipt Date: 20170725
  Transmission Date: 20171127
  Serious: Yes (Death, Other)
  Sender: FDA-Public Use
  Company Number: KP-CIPLA LTD.-2015KP02838

PATIENT

DRUGS (4)
  1. GEMCITABINE [Suspect]
     Active Substance: GEMCITABINE\GEMCITABINE HYDROCHLORIDE
     Indication: BILE DUCT CANCER
     Dosage: UNK
     Route: 065
  2. OXALIPLATIN. [Suspect]
     Active Substance: OXALIPLATIN
     Indication: BILE DUCT CANCER
     Dosage: 85 MG/M2, 2 HOUR INFUSION
  3. FLUOROURACIL. [Suspect]
     Active Substance: FLUOROURACIL
     Indication: BILE DUCT CANCER
     Dosage: (1.5 G/M2), 23-H INFUSION
  4. LEUCOVORIN. [Suspect]
     Active Substance: LEUCOVORIN
     Indication: BILE DUCT CANCER
     Dosage: 30 MG, TWO CONSECUTIVE DAYS
     Route: 042

REACTIONS (4)
  - Treatment failure [Unknown]
  - Septic shock [Fatal]
  - Biliary tract infection [Fatal]
  - Neutropenia [Unknown]
